FAERS Safety Report 15453216 (Version 1)
Quarter: 2018Q4

REPORT INFORMATION
  Report Type: Spontaneous
  Country: US (occurrence: US)
  Receive Date: 20181001
  Receipt Date: 20181001
  Transmission Date: 20190204
  Serious: No
  Sender: FDA-Public Use
  Company Number: US-SA-2018SA271046

PATIENT
  Sex: Female

DRUGS (1)
  1. ACT ADVANCED CARE PLAQUE GUARD ANTIGINGIVITIS ANTIPLAQUE CLEAN MINT [Suspect]
     Active Substance: CETYLPYRIDINIUM CHLORIDE

REACTIONS (2)
  - Product dispensing issue [Unknown]
  - Stomatitis [Unknown]
